FAERS Safety Report 7670254-7 (Version None)
Quarter: 2011Q3

REPORT INFORMATION
  Report Type: 
  Country: None (occurrence: None)
  Receive Date: 20110809
  Receipt Date: 20110802
  Transmission Date: 20111222
  Serious: Yes (Other)
  Sender: FDA-Public Use
  Company Number: FR-AMGEN-FRASP2011039531

PATIENT
  Age: 19 Year
  Sex: Female

DRUGS (3)
  1. PLAQUENIL [Concomitant]
     Indication: RHEUMATOID ARTHRITIS
     Dosage: 2 DF, 1X/DAY PER OS
     Route: 048
     Dates: start: 20101201
  2. ENBREL [Suspect]
     Indication: RHEUMATOID ARTHRITIS
     Dosage: 50 MG, WEEKLY
     Route: 058
     Dates: start: 20110426
  3. METHOTREXATE [Concomitant]
     Indication: RHEUMATOID ARTHRITIS
     Dosage: 8 DF, WEEKLY PER OS
     Route: 048
     Dates: start: 20100701

REACTIONS (5)
  - INJECTION SITE ERYTHEMA [None]
  - INJECTION SITE RECALL REACTION [None]
  - SKIN PLAQUE [None]
  - INJECTION SITE REACTION [None]
  - INJECTION SITE PRURITUS [None]
